FAERS Safety Report 7033338-2 (Version None)
Quarter: 2010Q4

REPORT INFORMATION
  Report Type: 
  Country: None (occurrence: None)
  Receive Date: 20101004
  Receipt Date: 20100917
  Transmission Date: 20110411
  Serious: Yes (Hospitalization)
  Sender: FDA-Public Use
  Company Number: ACO_02272_2010

PATIENT
  Age: 64 Year
  Sex: Male
  Weight: 80.7403 kg

DRUGS (2)
  1. AMPYRA [Suspect]
     Indication: GAIT DISTURBANCE
     Dosage: (10 MG BID ORAL)
     Route: 048
     Dates: start: 20100427, end: 20100701
  2. AMPYRA [Suspect]
     Dosage: 10 MG QD, AMPYRA DISCONTINUED AFTER ONE DOSE ORAL
     Dates: start: 20100808, end: 20100808

REACTIONS (4)
  - ABDOMINAL PAIN UPPER [None]
  - DEHYDRATION [None]
  - DIARRHOEA [None]
  - MUSCLE SPASMS [None]
